FAERS Safety Report 10563567 (Version 3)
Quarter: 2014Q4

REPORT INFORMATION
  Report Type: Spontaneous
  Country: US (occurrence: None)
  Receive Date: 20141104
  Receipt Date: 20141104
  Transmission Date: 20150529
  Serious: Yes (Hospitalization)
  Sender: FDA-Public Use
  Company Number: None

PATIENT
  Age: 51 Year
  Sex: Male
  Weight: 92.7 kg

DRUGS (14)
  1. ALBUMIN HUMAN [Concomitant]
     Active Substance: ALBUMIN (HUMAN)
  2. THIAMINE [Concomitant]
     Active Substance: THIAMINE
  3. SPIRONOLACTONE. [Concomitant]
     Active Substance: SPIRONOLACTONE
  4. EPOETIN ALFA [Concomitant]
     Active Substance: ERYTHROPOIETIN
  5. FOLIC ACID. [Concomitant]
     Active Substance: FOLIC ACID
  6. FUROSEMIDE. [Concomitant]
     Active Substance: FUROSEMIDE
  7. MAGNESIUM OXIDE. [Concomitant]
     Active Substance: MAGNESIUM OXIDE
  8. REBETOL [Suspect]
     Active Substance: RIBAVIRIN
     Indication: HEPATITIS C
     Route: 048
     Dates: start: 20140522, end: 20140904
  9. PANTOPRAZOLE [Concomitant]
     Active Substance: PANTOPRAZOLE SODIUM
  10. XIFAXAN [Concomitant]
     Active Substance: RIFAXIMIN
  11. SOVALDI [Suspect]
     Active Substance: SOFOSBUVIR
     Indication: HEPATITIS C
     Route: 048
     Dates: start: 20140522
  12. ABILIFY [Concomitant]
     Active Substance: ARIPIPRAZOLE
  13. LACTULOSE. [Concomitant]
     Active Substance: LACTULOSE
  14. TRAMADOL [Concomitant]
     Active Substance: TRAMADOL

REACTIONS (9)
  - Upper gastrointestinal haemorrhage [None]
  - Gastric disorder [None]
  - Dyspnoea [None]
  - Asthenia [None]
  - Refusal of treatment by patient [None]
  - Varices oesophageal [None]
  - Haemolytic anaemia [None]
  - Melaena [None]
  - Anaemia of chronic disease [None]

NARRATIVE: CASE EVENT DATE: 20141008
